FAERS Safety Report 10899779 (Version 4)
Quarter: 2017Q3

REPORT INFORMATION
  Report Type: Report from Study
  Country: BR (occurrence: BR)
  Receive Date: 20150310
  Receipt Date: 20170827
  Transmission Date: 20171127
  Serious: Yes (Life-Threatening, Hospitalization, Other)
  Sender: FDA-Public Use
  Company Number: PHHY2015BR028030

PATIENT
  Age: 48 Year
  Sex: Female
  Weight: 78 kg

DRUGS (11)
  1. TASIGNA [Suspect]
     Active Substance: NILOTINIB
     Dosage: 600 MG, QD
     Route: 065
     Dates: start: 201308
  2. TASIGNA [Suspect]
     Active Substance: NILOTINIB
     Dosage: 800 MG, QD
     Route: 065
     Dates: start: 201208
  3. TASIGNA [Suspect]
     Active Substance: NILOTINIB
     Dosage: 400 MG, QD
     Route: 065
  4. DASATINIB [Suspect]
     Active Substance: DASATINIB
     Indication: CHRONIC MYELOID LEUKAEMIA
     Dosage: 100 MG, QD
     Route: 065
     Dates: start: 20050818
  5. TASIGNA [Suspect]
     Active Substance: NILOTINIB
     Dosage: 600 MG, UNK
     Route: 065
  6. TASIGNA [Suspect]
     Active Substance: NILOTINIB
     Dosage: 400 MG, BID
     Route: 065
     Dates: start: 201009
  7. TASIGNA [Suspect]
     Active Substance: NILOTINIB
     Dosage: 400 MG, QD
     Route: 065
  8. TASIGNA [Suspect]
     Active Substance: NILOTINIB
     Dosage: 200 MG, BID (2 TABLETS)
     Route: 048
  9. GLIVEC [Suspect]
     Active Substance: IMATINIB MESYLATE
     Indication: CHRONIC MYELOID LEUKAEMIA
     Dosage: 400 MG,(1 DF) QD
     Route: 048
     Dates: start: 2003
  10. TASIGNA [Suspect]
     Active Substance: NILOTINIB
     Indication: CHRONIC MYELOID LEUKAEMIA
     Dosage: 2 DF (200 MG EACH CAPSULE), QD
     Route: 048
     Dates: start: 2009
  11. INTERFERON [Concomitant]
     Active Substance: INTERFERON
     Indication: PRODUCT USED FOR UNKNOWN INDICATION
     Route: 065

REACTIONS (21)
  - Electrocardiogram QT prolonged [Unknown]
  - Drug resistance [Unknown]
  - Arthralgia [Unknown]
  - Asthma [Unknown]
  - Pyrexia [Unknown]
  - Drug intolerance [Unknown]
  - Bronchitis [Unknown]
  - Platelet count decreased [Unknown]
  - Drug dispensing error [Unknown]
  - Feeling abnormal [Unknown]
  - Arrhythmia [Unknown]
  - Angina pectoris [Unknown]
  - Therapy non-responder [Unknown]
  - Chronic myeloid leukaemia transformation [Unknown]
  - Palpitations [Unknown]
  - Cytogenetic analysis abnormal [Unknown]
  - Pneumonia [Unknown]
  - Chest pain [Unknown]
  - Weight increased [Unknown]
  - Myocardial infarction [Unknown]
  - Cardiac disorder [Unknown]

NARRATIVE: CASE EVENT DATE: 201303
